FAERS Safety Report 18527020 (Version 1)
Quarter: 2020Q4

REPORT INFORMATION
  Report Type: Spontaneous
  Country: PT (occurrence: PT)
  Receive Date: 20201120
  Receipt Date: 20201120
  Transmission Date: 20210114
  Serious: Yes (Disabling)
  Sender: FDA-Public Use
  Company Number: PT-TEVA-2020-PT-1851713

PATIENT
  Age: 21 Year
  Sex: Female

DRUGS (8)
  1. FILOTEMPO [Suspect]
     Active Substance: AMINOPHYLLINE
     Indication: RESPIRATORY TRACT INFECTION
     Dosage: 1 EVERY 8 H  (UNIT DOSE: 675 MG)
     Route: 048
     Dates: start: 20191206, end: 20191214
  2. AMOXICILINA + ACIDO CLAVULANICO [Suspect]
     Active Substance: AMOXICILLIN\CLAVULANIC ACID
     Indication: RESPIRATORY TRACT INFECTION
     Dosage: 1 G EVERY 12 H (UNIT DOSE: 2 GRAM)
     Route: 048
     Dates: start: 20191206, end: 20191214
  3. SYMBICORT [Suspect]
     Active Substance: BUDESONIDE\FORMOTEROL FUMARATE DIHYDRATE
     Indication: RESPIRATORY TRACT INFECTION
     Dates: start: 20191206, end: 20191214
  4. OTO-SYNALAR N [Suspect]
     Active Substance: FLUOCINOLONE ACETONIDE\NEOMYCIN SULFATE\POLYMYXIN B SULFATE
     Indication: RESPIRATORY TRACT INFECTION
     Dosage: 2ID
     Route: 001
     Dates: start: 20191206, end: 20191214
  5. CODIPRONT [Suspect]
     Active Substance: CODEINE\PHENYLTOLOXAMINE
     Indication: RESPIRATORY TRACT INFECTION
     Dosage: 1ID  (UNIT DOSE: 40 MG)
     Route: 048
     Dates: start: 20191206, end: 20191214
  6. BEN-U-RON [Suspect]
     Active Substance: ACETAMINOPHEN
     Indication: RESPIRATORY TRACT INFECTION
     Dosage: 1 EVERY 12 HOURS  (UNIT DOSE: 2GRAM)
     Route: 048
     Dates: start: 20191206, end: 20191214
  7. MEBOCAINA FORTE [Suspect]
     Active Substance: BENOXINATE HYDROCHLORIDE\CETYLPYRIDINIUM CHLORIDE\TYROTHRICIN
     Indication: RESPIRATORY TRACT INFECTION
     Dosage: 1 TABLET EVERY 8 HOURS (UNIT DOSE: 15.6 MG)
     Dates: start: 20191206, end: 20191214
  8. DUALGAN [Suspect]
     Active Substance: ETODOLAC
     Indication: RESPIRATORY TRACT INFECTION
     Dosage: 1 EVERY 8H, UNIT DOSE: 900 MG
     Route: 048
     Dates: start: 20191206

REACTIONS (2)
  - Somnolence [Recovered/Resolved]
  - Fatigue [Recovered/Resolved]

NARRATIVE: CASE EVENT DATE: 20191206
